FAERS Safety Report 12249281 (Version 8)
Quarter: 2016Q3

REPORT INFORMATION
  Report Type: Spontaneous
  Country: CO (occurrence: CO)
  Receive Date: 20160408
  Receipt Date: 20160929
  Transmission Date: 20161109
  Serious: Yes (Other)
  Sender: FDA-Public Use
  Company Number: CO-JNJFOC-20151206340

PATIENT
  Age: 82 Year
  Sex: Female
  Weight: 45 kg

DRUGS (4)
  1. IMBRUVICA [Suspect]
     Active Substance: IBRUTINIB
     Indication: CHRONIC LYMPHOCYTIC LEUKAEMIA
     Route: 048
     Dates: start: 20151216, end: 20160421
  2. IMBRUVICA [Suspect]
     Active Substance: IBRUTINIB
     Indication: CHRONIC LYMPHOCYTIC LEUKAEMIA
     Route: 048
     Dates: start: 20160512
  3. IMBRUVICA [Suspect]
     Active Substance: IBRUTINIB
     Indication: CHRONIC LYMPHOCYTIC LEUKAEMIA
     Route: 048
     Dates: start: 20150914, end: 20151202
  4. IMBRUVICA [Suspect]
     Active Substance: IBRUTINIB
     Indication: CHRONIC LYMPHOCYTIC LEUKAEMIA
     Route: 048
     Dates: start: 20160422, end: 20160509

REACTIONS (17)
  - Blood blister [Recovered/Resolved]
  - Inflammation [Recovering/Resolving]
  - Inflammation [Not Recovered/Not Resolved]
  - Ecchymosis [Recovered/Resolved]
  - Muscle spasms [Not Recovered/Not Resolved]
  - Flushing [Not Recovered/Not Resolved]
  - Drug prescribing error [Unknown]
  - Aphthous ulcer [Recovered/Resolved]
  - Incorrect dose administered [Unknown]
  - Inflammation [Recovering/Resolving]
  - Musculoskeletal pain [Not Recovered/Not Resolved]
  - General physical health deterioration [Recovered/Resolved]
  - Asthenia [Recovered/Resolved]
  - Off label use [Unknown]
  - Musculoskeletal pain [Recovered/Resolved]
  - Purpura [Not Recovered/Not Resolved]
  - Haematoma [Not Recovered/Not Resolved]

NARRATIVE: CASE EVENT DATE: 20151015
